FAERS Safety Report 10305622 (Version 4)
Quarter: 2014Q3

REPORT INFORMATION
  Report Type: Spontaneous
  Country: FR (occurrence: FR)
  Receive Date: 20140715
  Receipt Date: 20140825
  Transmission Date: 20150326
  Serious: Yes (Other)
  Sender: FDA-Public Use
  Company Number: FR-PFIZER INC-2014193775

PATIENT
  Age: 64 Year
  Sex: Female

DRUGS (6)
  1. SOLU-MEDROL [Suspect]
     Active Substance: METHYLPREDNISOLONE SODIUM SUCCINATE
     Indication: PROPHYLAXIS OF NAUSEA AND VOMITING
     Dosage: 40 MG
     Route: 042
     Dates: end: 20110713
  2. ELOXATIN [Suspect]
     Active Substance: OXALIPLATIN
     Indication: COLON NEOPLASM
     Dosage: 140 MG, CYCLIC (6 COURSES)
     Route: 042
     Dates: end: 20110413
  3. FOLINATE DE CALCIUM ZENTIVA [Suspect]
     Active Substance: LEUCOVORIN CALCIUM
     Indication: COLON NEOPLASM
     Dosage: 630 MG, CYCLIC (12 COURSES)
     Route: 042
     Dates: end: 20110713
  4. ELOXATIN [Suspect]
     Active Substance: OXALIPLATIN
     Dosage: 135 MG, CYCLIC (6 COURSES)
     Route: 042
     Dates: start: 20110427, end: 20110713
  5. FLUOROURACILE PFIZER [Suspect]
     Active Substance: FLUOROURACIL
     Indication: COLON NEOPLASM
     Dosage: 4450 IN 3 DAYS, CYCLIC (12 COURSES)
     Route: 042
     Dates: end: 20110713
  6. ONDANSETRON. [Suspect]
     Active Substance: ONDANSETRON
     Indication: PROPHYLAXIS OF NAUSEA AND VOMITING
     Dosage: 1 DF
     Route: 042
     Dates: end: 20110713

REACTIONS (4)
  - Splenomegaly [Not Recovered/Not Resolved]
  - Portal hypertension [Not Recovered/Not Resolved]
  - Thrombocytopenia [Not Recovered/Not Resolved]
  - Hepatic enzyme increased [Not Recovered/Not Resolved]

NARRATIVE: CASE EVENT DATE: 20110209
